FAERS Safety Report 11058910 (Version 1)
Quarter: 2015Q2

REPORT INFORMATION
  Report Type: Report from Study
  Country: US (occurrence: None)
  Receive Date: 20150420
  Receipt Date: 20150420
  Transmission Date: 20150821
  Serious: No
  Sender: FDA-Public Use
  Company Number: AEGR001186

PATIENT
  Age: 68 Year
  Sex: Female
  Weight: 48.5 kg

DRUGS (9)
  1. VITAMIN E [Suspect]
     Active Substance: .ALPHA.-TOCOPHEROL
     Indication: SUPPLEMENTATION THERAPY
     Dates: start: 20150202
  2. ESTRACE (ESTRADIOL) [Concomitant]
  3. GABAPENTIN. [Concomitant]
     Active Substance: GABAPENTIN
  4. KLONOPIN [Concomitant]
     Active Substance: CLONAZEPAM
  5. BENZACLIN (BENZOYL PEROXIDE, CLINDAMYCIN PHOSPHATE) [Concomitant]
  6. OMEGA (CONVALLARIA MAJALIS, CRATAEGUS LAEVIGATA, PROXPHYLLINE) [Suspect]
     Active Substance: CONVALLARIA MAJALIS\CRATAEGUS LAEVIGATA LEAF\PROXYPHYLLINE
     Indication: SUPPLEMENTATION THERAPY
     Dates: start: 20150202
  7. ASPIRIN (ACETYLSALICYLIC ACID) [Concomitant]
     Active Substance: ASPIRIN
  8. JUXTAPID [Suspect]
     Active Substance: LOMITAPIDE MESYLATE
     Indication: TYPE IIA HYPERLIPIDAEMIA
     Route: 048
     Dates: start: 201412, end: 201503
  9. FISH OIL [Suspect]
     Active Substance: FISH OIL
     Indication: SUPPLEMENTATION THERAPY
     Dates: start: 20150204, end: 20150204

REACTIONS (13)
  - Pain in extremity [None]
  - Nausea [None]
  - Pain of skin [None]
  - Dizziness [None]
  - Therapy cessation [None]
  - Constipation [None]
  - Cross sensitivity reaction [None]
  - Alopecia [None]
  - Drug administration error [None]
  - Irritability [None]
  - Disorientation [None]
  - Burning sensation [None]
  - Nasal discomfort [None]

NARRATIVE: CASE EVENT DATE: 20150202
